FAERS Safety Report 5179219-0 (Version None)
Quarter: 2006Q4

REPORT INFORMATION
  Report Type: 
  Country: None (occurrence: None)
  Receive Date: 20061219
  Receipt Date: 20061011
  Transmission Date: 20070319
  Serious: Yes (Other)
  Sender: FDA-Public Use
  Company Number: 2006AP04840

PATIENT
  Age: 36 Year
  Sex: Female

DRUGS (2)
  1. XYLOCAINE W/ EPINEPHRINE [Suspect]
     Indication: LOCAL ANAESTHESIA
     Dosage: 4-5 ML
     Route: 008
     Dates: start: 20040714, end: 20040714
  2. XYLOCAINE W/ EPINEPHRINE [Suspect]
     Indication: SINUSITIS
     Dosage: 4-5 ML
     Route: 008
     Dates: start: 20040714, end: 20040714

REACTIONS (4)
  - CONJUNCTIVAL OEDEMA [None]
  - EYE SWELLING [None]
  - PUPILLARY REFLEX IMPAIRED [None]
  - VISUAL ACUITY REDUCED [None]
